FAERS Safety Report 19309366 (Version 11)
Quarter: 2025Q1

REPORT INFORMATION
  Report Type: Spontaneous
  Country: US (occurrence: US)
  Receive Date: 20210526
  Receipt Date: 20250131
  Transmission Date: 20250408
  Serious: Yes (Disabling, Other)
  Sender: PFIZER
  Company Number: US-PFIZER INC-2021377621

PATIENT
  Age: 75 Year
  Sex: Female
  Weight: 72.562 kg

DRUGS (5)
  1. XELJANZ [Suspect]
     Active Substance: TOFACITINIB CITRATE
     Indication: Colitis ulcerative
     Dosage: 5 MG, 2X/DAY
     Dates: start: 2018
  2. XELJANZ [Suspect]
     Active Substance: TOFACITINIB CITRATE
     Dosage: 5 MG, 2X/DAY
  3. XELJANZ [Suspect]
     Active Substance: TOFACITINIB CITRATE
  4. FAMOTIDINE [Concomitant]
     Active Substance: FAMOTIDINE
     Dates: start: 202401
  5. PANTOPRAZOLE SODIUM [Concomitant]
     Active Substance: PANTOPRAZOLE SODIUM
     Dates: start: 2004

REACTIONS (9)
  - Hypertension [Unknown]
  - Eye operation [Unknown]
  - Malaise [Recovered/Resolved]
  - Mood altered [Unknown]
  - Illness [Recovered/Resolved]
  - Stress [Unknown]
  - Fatigue [Unknown]
  - Insomnia [Unknown]
  - Eye pain [Not Recovered/Not Resolved]
